FAERS Safety Report 5959966-0 (Version None)
Quarter: 2008Q4

REPORT INFORMATION
  Report Type: 
  Country: None (occurrence: None)
  Receive Date: 20081120
  Receipt Date: 20081110
  Transmission Date: 20090506
  Serious: Yes (Hospitalization)
  Sender: FDA-Public Use
  Company Number: US-MERCK-0811USA02465

PATIENT
  Age: 35 Year
  Sex: Female

DRUGS (13)
  1. PRINIVIL [Suspect]
     Route: 048
  2. HEPARIN SODIUM [Suspect]
     Indication: THROMBOSIS PROPHYLAXIS
     Route: 058
  3. MORPHINE SULFATE [Suspect]
     Indication: PAIN
     Route: 042
  4. WARFARIN SODIUM [Suspect]
     Route: 065
  5. POTASSIUM CHLORIDE [Suspect]
     Route: 048
  6. METOPROLOL [Suspect]
     Route: 048
  7. FUROSEMIDE [Suspect]
     Route: 048
  8. DIGOXIN [Suspect]
     Route: 065
  9. ASPIRIN [Suspect]
     Route: 065
  10. LANSOPRAZOLE [Suspect]
     Indication: PROPHYLAXIS
     Route: 048
  11. DOCUSATE SODIUM [Suspect]
     Route: 065
  12. ACETAMINOPHEN AND HYDROCODONE BITARTRATE [Suspect]
     Indication: PAIN
     Route: 065
  13. ONDANSETRON [Suspect]
     Indication: NAUSEA
     Route: 065

REACTIONS (8)
  - ACUTE MYOCARDIAL INFARCTION [None]
  - HEPATIC INFARCTION [None]
  - INTRACARDIAC THROMBUS [None]
  - ISCHAEMIC STROKE [None]
  - PULMONARY EMBOLISM [None]
  - RENAL INFARCT [None]
  - SPLENIC INFARCTION [None]
  - THROMBOSIS [None]
